FAERS Safety Report 9241745 (Version 1)
Quarter: 2013Q2

REPORT INFORMATION
  Report Type: Spontaneous
  Country: AU (occurrence: AU)
  Receive Date: 20130419
  Receipt Date: 20130419
  Transmission Date: 20140414
  Serious: Yes (Hospitalization)
  Sender: FDA-Public Use
  Company Number: AU-PURDUE-USA-2013-0100515

PATIENT
  Age: 89 Year
  Sex: Male
  Weight: 65 kg

DRUGS (7)
  1. NORSPAN (NDA 21-306) [Suspect]
     Indication: BACK PAIN
     Dosage: 5 MCG/HR, UNK
     Route: 062
     Dates: start: 201210
  2. NORSPAN (NDA 21-306) [Suspect]
     Indication: PAIN
     Dosage: 5 MCG/HR, WEEKLY
     Route: 062
     Dates: start: 20121114, end: 20130111
  3. DIAFORMINA                         /00082701/ [Concomitant]
     Indication: PRODUCT USED FOR UNKNOWN INDICATION
     Dosage: UNK
     Dates: start: 2001
  4. COVERSYL                           /00790702/ [Concomitant]
     Indication: PRODUCT USED FOR UNKNOWN INDICATION
     Dosage: 2.5 MG, DAILY
  5. PANADOL OSTEO [Concomitant]
     Indication: PRODUCT USED FOR UNKNOWN INDICATION
     Dosage: 3990 MG, DAILY
  6. SPIRIVA [Concomitant]
     Indication: PRODUCT USED FOR UNKNOWN INDICATION
     Dosage: UNK
     Dates: start: 2002
  7. SYMBICORT [Concomitant]
     Indication: PRODUCT USED FOR UNKNOWN INDICATION
     Dosage: UNKNOWN
     Dates: start: 2002

REACTIONS (2)
  - Liver function test abnormal [Recovered/Resolved]
  - Malaise [Recovered/Resolved]
